FAERS Safety Report 9227652 (Version 1)
Quarter: 2013Q1

REPORT INFORMATION
  Report Type: Spontaneous
  Country: US (occurrence: None)
  Receive Date: 20121031
  Receipt Date: 20121031
  Transmission Date: 20140127
  Serious: No
  Sender: FDA-Public Use
  Company Number: PHEH2012US015637

PATIENT
  Age: 58 Year
  Sex: Female

DRUGS (6)
  1. GILENYA (FTY)CAPSULE, 0.5MG [Suspect]
     Indication: MULTIPLE SCLEROSIS
     Route: 048
     Dates: start: 201207
  2. VALIUM (DIAZEPAM) [Concomitant]
  3. BACLOFEN (BACLOFEN) [Concomitant]
  4. B-COMPLEX (VITAMIN B NOS) [Concomitant]
  5. VITAMIN D (ERGOCALCIFEROL) [Concomitant]
  6. MAGNESIUM (MAGNESIUM) [Concomitant]

REACTIONS (2)
  - Flushing [None]
  - Headache [None]
